FAERS Safety Report 6089984-6 (Version None)
Quarter: 2009Q1

REPORT INFORMATION
  Report Type: 
  Country: None (occurrence: None)
  Receive Date: 20090224
  Receipt Date: 20081125
  Transmission Date: 20090719
  Serious: No
  Sender: FDA-Public Use
  Company Number: US-ABBOTT-08P-163-0489750-00

PATIENT
  Sex: Male

DRUGS (6)
  1. SIMCOR [Suspect]
     Indication: BLOOD CHOLESTEROL
     Dosage: 1 IN 1 D AT NIGHT
     Dates: start: 20081122
  2. ACETYLSALICYLIC ACID SRT [Concomitant]
     Indication: DRUG USE FOR UNKNOWN INDICATION
     Route: 048
  3. MORNIFLUMATE [Concomitant]
     Indication: DRUG USE FOR UNKNOWN INDICATION
     Route: 048
  4. FUROSEMIDE [Concomitant]
     Indication: DRUG USE FOR UNKNOWN INDICATION
     Route: 048
  5. LEVOTHYROXINE SODIUM [Concomitant]
     Indication: DRUG USE FOR UNKNOWN INDICATION
  6. UNKNOWN MEDICATION FOR BPH [Concomitant]
     Indication: BENIGN PROSTATIC HYPERPLASIA

REACTIONS (3)
  - FLUSHING [None]
  - MUSCLE SPASMS [None]
  - SKIN BURNING SENSATION [None]
